FAERS Safety Report 11368282 (Version 1)
Quarter: 2015Q3

REPORT INFORMATION
  Report Type: Spontaneous
  Country: US (occurrence: None)
  Receive Date: 20150811
  Receipt Date: 20150811
  Transmission Date: 20151125
  Serious: No
  Sender: FDA-Public Use
  Company Number: None

PATIENT
  Age: 66 Year
  Sex: Female

DRUGS (10)
  1. COCONUT OIL [Concomitant]
     Active Substance: COCONUT OIL
  2. METFORMIN [Concomitant]
     Active Substance: METFORMIN HYDROCHLORIDE
  3. NITROFURANTOIN. [Concomitant]
     Active Substance: NITROFURANTOIN
  4. MAGNESIUM [Concomitant]
     Active Substance: MAGNESIUM
  5. FARXIGA [Suspect]
     Active Substance: DAPAGLIFLOZIN PROPANEDIOL
     Indication: DIABETES MELLITUS
     Route: 048
     Dates: start: 20150805, end: 20150809
  6. ATENOLOL. [Concomitant]
     Active Substance: ATENOLOL
  7. CALCIUM [Concomitant]
     Active Substance: CALCIUM
  8. IBUPROFEN. [Concomitant]
     Active Substance: IBUPROFEN
  9. CINNAMON. [Concomitant]
     Active Substance: CINNAMON
  10. LISINOPRIL. [Concomitant]
     Active Substance: LISINOPRIL

REACTIONS (2)
  - Renal pain [None]
  - Hepatic pain [None]

NARRATIVE: CASE EVENT DATE: 20150810
